FAERS Safety Report 20910862 (Version 1)
Quarter: 2022Q2

REPORT INFORMATION
  Report Type: Spontaneous
  Country: US (occurrence: None)
  Receive Date: 20220602
  Receipt Date: 20220602
  Transmission Date: 20220721
  Serious: Yes (Death, Hospitalization, Other)
  Sender: FDA-Public Use
  Company Number: None

PATIENT
  Age: 73 Year
  Sex: Female
  Weight: 110.9 kg

DRUGS (6)
  1. PROTAMINE SULFATE [Suspect]
     Active Substance: PROTAMINE SULFATE
     Indication: Procoagulant therapy
     Dosage: FREQUENCY : ONCE;?
     Route: 040
  2. AMIODARONE [Concomitant]
     Active Substance: AMIODARONE
  3. MILRINONE [Concomitant]
     Active Substance: MILRINONE
  4. AMINOCAPROIC ACID [Concomitant]
     Active Substance: AMINOCAPROIC ACID
  5. DOBUTAMINE [Concomitant]
     Active Substance: DOBUTAMINE HYDROCHLORIDE
  6. DEXMEDETOMIDINE [Concomitant]
     Active Substance: DEXMEDETOMIDINE

REACTIONS (6)
  - Adverse drug reaction [None]
  - Feeling abnormal [None]
  - General physical health deterioration [None]
  - Right ventricular failure [None]
  - Coagulopathy [None]
  - Shock [None]

NARRATIVE: CASE EVENT DATE: 20220519
